FAERS Safety Report 6082228-0 (Version None)
Quarter: 2009Q1

REPORT INFORMATION
  Report Type: 
  Country: None (occurrence: None)
  Receive Date: 20090121
  Receipt Date: 20081112
  Transmission Date: 20090719
  Serious: Yes (Other)
  Sender: FDA-Public Use
  Company Number: US-WYE-H06835608

PATIENT
  Age: 76 Year
  Sex: Male
  Weight: 93.07 kg

DRUGS (2)
  1. ADVIL PM [Suspect]
     Indication: INSOMNIA
     Dosage: 1 CAPSULE X 1, ORAL
     Route: 048
     Dates: start: 20081110, end: 20081110
  2. ACETYLSALICYLIC ACID SRT [Concomitant]

REACTIONS (2)
  - ABDOMINAL PAIN UPPER [None]
  - FEELING ABNORMAL [None]
